FAERS Safety Report 9027838 (Version 1)
Quarter: 2013Q1

REPORT INFORMATION
  Report Type: Spontaneous
  Country: US (occurrence: None)
  Receive Date: 20130115
  Receipt Date: 20130115
  Transmission Date: 20140127
  Serious: Yes (Other)
  Sender: FDA-Public Use
  Company Number: None

PATIENT
  Age: 56 Year
  Sex: Male
  Weight: 92.08 kg

DRUGS (1)
  1. AMBIEN [Suspect]
     Route: 048
     Dates: start: 20000101, end: 20120101

REACTIONS (5)
  - Drug effect decreased [None]
  - Somnambulism [None]
  - Abnormal sleep-related event [None]
  - Memory impairment [None]
  - Aphasia [None]
